FAERS Safety Report 16634510 (Version 1)
Quarter: 2019Q3

REPORT INFORMATION
  Report Type: Spontaneous
  Country: JP (occurrence: JP)
  Receive Date: 20190726
  Receipt Date: 20190726
  Transmission Date: 20191004
  Serious: Yes (Hospitalization)
  Sender: FDA-Public Use
  Company Number: JP-TEVA-2019-JP-1083987

PATIENT
  Age: 73 Year
  Sex: Male

DRUGS (2)
  1. PREDNISOLONE. [Suspect]
     Active Substance: PREDNISOLONE
     Indication: LUNG ADENOCARCINOMA
     Dosage: AN ASCENDING-DOSE REGIMEN OF PREDNISOLONE THAT INCREASED BY 5 MG EVERY 5 DAYS TO A TOTAL OF 20 MG
     Route: 065
     Dates: start: 2017
  2. PEMBROLIZUMAB. [Suspect]
     Active Substance: PEMBROLIZUMAB
     Indication: LUNG ADENOCARCINOMA
     Route: 065
     Dates: start: 201707

REACTIONS (3)
  - Myopathy [Recovering/Resolving]
  - Myasthenia gravis [Recovering/Resolving]
  - Ocular myasthenia [Recovering/Resolving]

NARRATIVE: CASE EVENT DATE: 2017
